FAERS Safety Report 4673378-1 (Version None)
Quarter: 2005Q2

REPORT INFORMATION
  Report Type: 
  Country: None (occurrence: None)
  Receive Date: 20050525
  Receipt Date: 20050324
  Transmission Date: 20051028
  Serious: Yes (Hospitalization)
  Sender: FDA-Public Use
  Company Number: US-ROCHE-399637

PATIENT
  Age: 2 Month
  Sex: Male
  Weight: 3.3 kg

DRUGS (2)
  1. ROCEPHIN [Suspect]
     Route: 030
     Dates: start: 20050323, end: 20050323
  2. ROCEPHIN [Suspect]
     Route: 030
     Dates: start: 20050324

REACTIONS (6)
  - APHASIA [None]
  - APNOEA [None]
  - GASTROOESOPHAGEAL REFLUX DISEASE [None]
  - MENTAL DISORDER [None]
  - MENTAL STATUS CHANGES [None]
  - SYNCOPE [None]
